FAERS Safety Report 18730068 (Version 1)
Quarter: 2021Q1

REPORT INFORMATION
  Report Type: Other
  Country: FR (occurrence: FR)
  Receive Date: 20210112
  Receipt Date: 20210112
  Transmission Date: 20210419
  Serious: Yes (Life-Threatening, Hospitalization)
  Sender: FDA-Public Use
  Company Number: FR-VERITY PHARMACEUTICALS, INC.-2020VTY00593

PATIENT
  Age: 71 Year
  Sex: Male
  Weight: 77 kg

DRUGS (3)
  1. TRIPTORELIN PAMOATE [Suspect]
     Active Substance: TRIPTORELIN PAMOATE
     Indication: PROSTATE CANCER
     Dosage: 1 DF, 2X/YEAR (EVERY 6 MONTHS)
     Route: 030
     Dates: start: 20160612
  2. ZYTIGA [Suspect]
     Active Substance: ABIRATERONE ACETATE
     Indication: PROSTATE CANCER
     Dosage: 4 DF, 1X/DAY
     Route: 048
     Dates: start: 20170823, end: 20181004
  3. PREDNISONE. [Suspect]
     Active Substance: PREDNISONE
     Indication: PROSTATE CANCER
     Dosage: 10 MG, 1X/DAY
     Route: 048
     Dates: start: 20170823

REACTIONS (1)
  - Acute coronary syndrome [Recovering/Resolving]

NARRATIVE: CASE EVENT DATE: 20180906
